FAERS Safety Report 12590843 (Version 1)
Quarter: 2016Q3

REPORT INFORMATION
  Report Type: Spontaneous
  Country: BR (occurrence: BR)
  Receive Date: 20160726
  Receipt Date: 20160726
  Transmission Date: 20161109
  Serious: Yes (Other)
  Sender: FDA-Public Use
  Company Number: BR-ROCHE-1800145

PATIENT
  Sex: Female

DRUGS (1)
  1. RIVOTRIL [Suspect]
     Active Substance: CLONAZEPAM
     Indication: PRODUCT USED FOR UNKNOWN INDICATION
     Route: 065

REACTIONS (6)
  - Blood triglycerides abnormal [Unknown]
  - Tremor [Unknown]
  - Mental disorder [Unknown]
  - Incoherent [Not Recovered/Not Resolved]
  - Cerebrovascular accident [Unknown]
  - Diabetes mellitus [Unknown]
